FAERS Safety Report 6898021-2 (Version None)
Quarter: 2010Q3

REPORT INFORMATION
  Report Type: 
  Country: None (occurrence: None)
  Receive Date: 20100802
  Receipt Date: 20070827
  Transmission Date: 20110219
  Serious: Yes (Other)
  Sender: FDA-Public Use
  Company Number: US-PFIZER INC-2007071897

PATIENT
  Sex: Female
  Weight: 55.8 kg

DRUGS (9)
  1. LYRICA [Suspect]
     Indication: FIBROMYALGIA
     Dates: start: 20070401
  2. PROTONIX [Concomitant]
  3. CLONAZEPAM [Concomitant]
  4. METOPROLOL [Concomitant]
  5. CYMBALTA [Concomitant]
  6. FERROUS SULFATE [Concomitant]
  7. VIOKASE [Concomitant]
  8. DETROL LA [Concomitant]
  9. LEVOTHYROXINE SODIUM [Concomitant]
     Indication: HYPOTHYROIDISM

REACTIONS (2)
  - THYROID FUNCTION TEST ABNORMAL [None]
  - WEIGHT INCREASED [None]
